FAERS Safety Report 21440635 (Version 1)
Quarter: 2022Q4

REPORT INFORMATION
  Report Type: Spontaneous
  Country: US (occurrence: US)
  Receive Date: 20221011
  Receipt Date: 20221011
  Transmission Date: 20230112
  Serious: No
  Sender: FDA-Public Use
  Company Number: US-BAYER-2022A139519

PATIENT
  Age: 40 Year
  Sex: Female

DRUGS (1)
  1. KYLEENA [Suspect]
     Active Substance: LEVONORGESTREL
     Indication: Product used for unknown indication
     Dosage: 17.5?G/DAY
     Route: 015
     Dates: start: 20220929, end: 20220929

REACTIONS (4)
  - Complication of device insertion [None]
  - Uterine spasm [None]
  - Off label use of device [None]
  - Device use issue [None]

NARRATIVE: CASE EVENT DATE: 20220929
